FAERS Safety Report 7512447-5 (Version None)
Quarter: 2011Q2

REPORT INFORMATION
  Report Type: 
  Country: None (occurrence: None)
  Receive Date: 20110520
  Receipt Date: 20110429
  Transmission Date: 20111010
  Serious: Yes (Hospitalization)
  Sender: FDA-Public Use
  Company Number: 2010001766

PATIENT
  Age: 64 Year
  Sex: Male

DRUGS (21)
  1. BARACLUDE [Concomitant]
  2. AMOXICILLIN [Concomitant]
  3. AVAPRO [Concomitant]
  4. FLOMAX [Concomitant]
  5. NEXIUM [Concomitant]
  6. HYDROZOLE CREAM [Concomitant]
  7. ERLOTINIB HYDROCHLORIDE [Suspect]
     Indication: HEPATIC NEOPLASM MALIGNANT
     Dosage: 150 MG, QD, ORAL
     Route: 048
     Dates: start: 20091223, end: 20100218
  8. ERLOTINIB HYDROCHLORIDE [Suspect]
     Indication: HEPATIC NEOPLASM MALIGNANT
     Dosage: 150 MG, QD, ORAL
     Route: 048
     Dates: start: 20100306, end: 20100427
  9. LASIX [Concomitant]
  10. CLOTRIMAZOLE/HYDROCORTISONE [Concomitant]
  11. FLAGYL [Concomitant]
  12. ZOCOR [Concomitant]
  13. SORAFENIB (TABLET) [Suspect]
     Indication: HEPATIC NEOPLASM MALIGNANT
     Dosage: 400 MG, BID, ORAL
     Route: 048
     Dates: start: 20100406, end: 20100426
  14. SORAFENIB (TABLET) [Suspect]
     Indication: HEPATIC NEOPLASM MALIGNANT
     Dosage: 400 MG, BID, ORAL
     Route: 048
     Dates: start: 20100326, end: 20100405
  15. SORAFENIB (TABLET) [Suspect]
     Indication: HEPATIC NEOPLASM MALIGNANT
     Dosage: 400 MG, BID, ORAL
     Route: 048
     Dates: start: 20100215, end: 20100215
  16. SORAFENIB (TABLET) [Suspect]
     Indication: HEPATIC NEOPLASM MALIGNANT
     Dosage: 400 MG, BID, ORAL
     Route: 048
     Dates: start: 20091223, end: 20100214
  17. SORAFENIB (TABLET) [Suspect]
     Indication: HEPATIC NEOPLASM MALIGNANT
     Dosage: 400 MG, BID, ORAL
     Route: 048
     Dates: start: 20100306, end: 20100316
  18. PANADEINE FORTE (PANADEINE CO) [Concomitant]
  19. TEMAZEPAM [Concomitant]
  20. NIZATIDINE [Concomitant]
  21. SPIRONOLACTONE [Concomitant]

REACTIONS (5)
  - ULCER HAEMORRHAGE [None]
  - HEPATIC NEOPLASM MALIGNANT [None]
  - MOUTH ULCERATION [None]
  - NEOPLASM PROGRESSION [None]
  - OESOPHAGEAL VARICES HAEMORRHAGE [None]
